FAERS Safety Report 16107684 (Version 2)
Quarter: 2019Q2

REPORT INFORMATION
  Report Type: Spontaneous
  Country: US (occurrence: US)
  Receive Date: 20190322
  Receipt Date: 20190405
  Transmission Date: 20190711
  Serious: Yes (Hospitalization, Other)
  Sender: FDA-Public Use
  Company Number: US-PRINSTON PHARMACEUTICAL INC.-2019PRN00351

PATIENT
  Sex: Male
  Weight: 89.34 kg

DRUGS (9)
  1. LOSARTAN POTASSIUM. [Suspect]
     Active Substance: LOSARTAN POTASSIUM
     Indication: HYPERTENSION
     Dosage: 25 MG, 1X/DAY IN THE MORNING
     Route: 048
     Dates: start: 2007
  2. CARVEDILOL. [Concomitant]
     Active Substance: CARVEDILOL
     Dosage: 12.5 MG, 2X/DAY
  3. ALBUTEROL NEBULIZER SOLUTION [Concomitant]
     Active Substance: ALBUTEROL
     Dosage: UNK
  4. AMLODIPINE [Concomitant]
     Active Substance: AMLODIPINE BESYLATE
     Dosage: 10 MG, 1X/DAY
  5. ATORVASTATIN [Concomitant]
     Active Substance: ATORVASTATIN
     Indication: BLOOD CHOLESTEROL
     Dosage: 80 MG, 1X/DAY
  6. METFORMIN [Concomitant]
     Active Substance: METFORMIN HYDROCHLORIDE
     Dosage: 1000 MG, 1X/DAY IN THE MORNING
  7. ANORO ELLIPTA [Concomitant]
     Active Substance: UMECLIDINIUM BROMIDE\VILANTEROL TRIFENATATE
     Dosage: 62.5 ?G, 1X/DAY
     Route: 055
  8. PLAVIX [Concomitant]
     Active Substance: CLOPIDOGREL BISULFATE
     Dosage: UNK
     Dates: start: 2007
  9. DALIRESP [Concomitant]
     Active Substance: ROFLUMILAST
     Dosage: UNK

REACTIONS (2)
  - Myocardial infarction [Recovered/Resolved]
  - Colon cancer [Recovered/Resolved]

NARRATIVE: CASE EVENT DATE: 2012
